FAERS Safety Report 24738815 (Version 1)
Quarter: 2024Q4

REPORT INFORMATION
  Report Type: Spontaneous
  Country: ES (occurrence: ES)
  Receive Date: 20241216
  Receipt Date: 20241216
  Transmission Date: 20250115
  Serious: Yes (Other)
  Sender: BAXTER
  Company Number: None

PATIENT
  Age: 21 Year
  Sex: Male
  Weight: 65 kg

DRUGS (1)
  1. PROPOFOL [Suspect]
     Active Substance: PROPOFOL
     Indication: Breast operation
     Dosage: 20 ML, 1 TOTAL
     Route: 042
     Dates: start: 20241007, end: 20241007

REACTIONS (4)
  - Vascular access site extravasation [Recovered/Resolved]
  - Vascular access site oedema [Recovered/Resolved]
  - Vascular access site pain [Recovered/Resolved]
  - Product administration error [Recovered/Resolved]

NARRATIVE: CASE EVENT DATE: 20241007
